FAERS Safety Report 8065872-0 (Version None)
Quarter: 2012Q1

REPORT INFORMATION
  Report Type: 
  Country: None (occurrence: None)
  Receive Date: 20120124
  Receipt Date: 20120113
  Transmission Date: 20120608
  Serious: Yes (Hospitalization)
  Sender: FDA-Public Use
  Company Number: FR-SANOFI-AVENTIS-2012SA002483

PATIENT
  Age: 5 Year
  Sex: Male

DRUGS (2)
  1. TEGRETOL [Suspect]
     Route: 048
     Dates: start: 20111211, end: 20111229
  2. CLAFORAN [Suspect]
     Route: 042
     Dates: start: 20111209, end: 20111229

REACTIONS (3)
  - AGRANULOCYTOSIS [None]
  - LYMPHOPENIA [None]
  - PLATELET COUNT DECREASED [None]
